FAERS Safety Report 4789975-9 (Version None)
Quarter: 2005Q4

REPORT INFORMATION
  Report Type: 
  Country: None (occurrence: None)
  Receive Date: 20051006
  Receipt Date: 20050929
  Transmission Date: 20060501
  Serious: Yes (Hospitalization)
  Sender: FDA-Public Use
  Company Number: US-MERCK-0510USA00373

PATIENT
  Age: 39 Year
  Sex: Male
  Weight: 93 kg

DRUGS (3)
  1. VIOXX [Suspect]
     Indication: ARTHRITIS
     Route: 048
     Dates: start: 20031012, end: 20040116
  2. BC POWDER (OLD FORMULA) [Concomitant]
     Route: 048
  3. LORTAB [Concomitant]
     Route: 048

REACTIONS (4)
  - CARDIAC DISORDER [None]
  - CHEST PAIN [None]
  - CORONARY ARTERY OCCLUSION [None]
  - OVERDOSE [None]
